FAERS Safety Report 5514174-2 (Version None)
Quarter: 2007Q4

REPORT INFORMATION
  Report Type: 
  Country: None (occurrence: None)
  Receive Date: 20071113
  Receipt Date: 20071106
  Transmission Date: 20080405
  Serious: Yes (Other)
  Sender: FDA-Public Use
  Company Number: GB-JNJFOC-20071102390

PATIENT
  Age: 73 Year
  Sex: Male

DRUGS (2)
  1. REMINYL [Suspect]
     Indication: DEMENTIA ALZHEIMER'S TYPE
     Route: 048
  2. AMLODIPINE [Concomitant]
     Route: 048

REACTIONS (1)
  - COLITIS ULCERATIVE [None]
